FAERS Safety Report 21763653 (Version 1)
Quarter: 2022Q4

REPORT INFORMATION
  Report Type: Report from Study
  Country: CO (occurrence: CO)
  Receive Date: 20221222
  Receipt Date: 20221222
  Transmission Date: 20230113
  Serious: Yes (Hospitalization, Other)
  Sender: FDA-Public Use
  Company Number: CO-ABBVIE-4244638

PATIENT
  Age: 76 Year
  Sex: Male
  Weight: 74 kg

DRUGS (1)
  1. HUMIRA [Suspect]
     Active Substance: ADALIMUMAB
     Indication: Crohn^s disease
     Dosage: FROM STRENGTH 40 MILLIGRAMS
     Route: 058
     Dates: start: 20191105, end: 20221007

REACTIONS (5)
  - Aneurysm [Not Recovered/Not Resolved]
  - Thrombosis [Recovering/Resolving]
  - Pain [Recovering/Resolving]
  - Vascular occlusion [Recovering/Resolving]
  - Vascular stent occlusion [Recovering/Resolving]

NARRATIVE: CASE EVENT DATE: 20220601
